FAERS Safety Report 8190009 (Version 3)
Quarter: 2014Q3

REPORT INFORMATION
  Report Type: Report from Study
  Country: CA (occurrence: CA)
  Receive Date: 20111019
  Receipt Date: 20140811
  Transmission Date: 20150326
  Serious: Yes (Death, Other)
  Sender: FDA-Public Use
  Company Number: CA-CELGENEUS-028-21660-11101313

PATIENT

DRUGS (8)
  1. ABRAXANE [Suspect]
     Active Substance: PACLITAXEL
     Route: 041
  2. CARBOPLATIN. [Suspect]
     Active Substance: CARBOPLATIN
     Indication: SQUAMOUS CELL CARCINOMA OF HEAD AND NECK
     Dosage: AUC 1.5
     Route: 041
  3. CIPROFLOXACIN. [Concomitant]
     Active Substance: CIPROFLOXACIN
     Indication: PROPHYLAXIS
     Route: 048
  4. G-CSF [Concomitant]
     Active Substance: FILGRASTIM
     Indication: INFECTION PROPHYLAXIS
     Route: 065
  5. CISPLATIN. [Suspect]
     Active Substance: CISPLATIN
     Route: 041
  6. CISPLATIN. [Suspect]
     Active Substance: CISPLATIN
     Indication: SQUAMOUS CELL CARCINOMA OF HEAD AND NECK
     Route: 041
  7. 5-FLUOROURACIL [Suspect]
     Active Substance: FLUOROURACIL
     Indication: SQUAMOUS CELL CARCINOMA OF HEAD AND NECK
     Route: 041
  8. ABRAXANE [Suspect]
     Active Substance: PACLITAXEL
     Indication: SQUAMOUS CELL CARCINOMA OF HEAD AND NECK
     Route: 041

REACTIONS (31)
  - Squamous cell carcinoma of head and neck [Fatal]
  - Anaemia [Unknown]
  - Alopecia [Unknown]
  - Peripheral sensory neuropathy [Unknown]
  - Oesophagitis [Unknown]
  - Lymphopenia [Unknown]
  - Neutropenia [Unknown]
  - Diarrhoea [Unknown]
  - Decreased appetite [Unknown]
  - Hypocalcaemia [Unknown]
  - Alanine aminotransferase increased [Unknown]
  - Dysphagia [Unknown]
  - Stomatitis [Unknown]
  - Hyponatraemia [Unknown]
  - Vomiting [Unknown]
  - Radiation skin injury [Unknown]
  - Febrile neutropenia [Unknown]
  - Hypoalbuminaemia [Unknown]
  - Nausea [Unknown]
  - Dry mouth [Unknown]
  - Fatigue [Unknown]
  - Neuropathy peripheral [Unknown]
  - Hypophosphataemia [Unknown]
  - Thrombocytopenia [Unknown]
  - Laryngeal pain [Unknown]
  - Thrombosis [Unknown]
  - Hypomagnesaemia [Unknown]
  - Trismus [Unknown]
  - Tinnitus [Unknown]
  - Dysgeusia [Unknown]
  - Squamous cell carcinoma of head and neck [Unknown]
